FAERS Safety Report 4661149-1 (Version None)
Quarter: 2005Q2

REPORT INFORMATION
  Report Type: 
  Country: None (occurrence: None)
  Receive Date: 20050511
  Receipt Date: 20050426
  Transmission Date: 20051028
  Serious: Yes (Hospitalization)
  Sender: FDA-Public Use
  Company Number: MK200504-0332-1

PATIENT
  Age: 22 Year
  Sex: Male

DRUGS (1)
  1. BAROSPERSE ENEMA KT 454GM/16OZ BARIUM SULFATE [Suspect]
     Indication: BARIUM ENEMA

REACTIONS (17)
  - ABDOMINAL PAIN LOWER [None]
  - ALANINE AMINOTRANSFERASE INCREASED [None]
  - BLOOD ALKALINE PHOSPHATASE INCREASED [None]
  - CROHN'S DISEASE [None]
  - ESCHERICHIA SEPSIS [None]
  - FISTULA [None]
  - GAMMA-GLUTAMYLTRANSFERASE INCREASED [None]
  - GRANULOMA [None]
  - HEPATOMEGALY [None]
  - INTESTINAL FISTULA [None]
  - JAUNDICE [None]
  - LEUKOCYTOSIS [None]
  - LIVER DISORDER [None]
  - POST PROCEDURAL COMPLICATION [None]
  - PYREXIA [None]
  - THROMBOCYTOPENIA [None]
  - VENOUS INJURY [None]
